FAERS Safety Report 4977591-5 (Version None)
Quarter: 2006Q2

REPORT INFORMATION
  Report Type: 
  Country: None (occurrence: None)
  Receive Date: 20060414
  Receipt Date: 20060404
  Transmission Date: 20061013
  Serious: Yes (Death, Hospitalization)
  Sender: FDA-Public Use
  Company Number: ITWYE498122MAR06

PATIENT
  Sex: Male

DRUGS (1)
  1. FAXINE (VENLAFAXINE HYDROCHLORIDE) [Suspect]
     Dosage: ORAL  4-5 DAYS OF THERAPY ABOUT 4 WEEKS AGO
     Route: 048
     Dates: start: 20060201, end: 20060201

REACTIONS (1)
  - HYPERPYREXIA [None]
